FAERS Safety Report 4702657-4 (Version None)
Quarter: 2005Q2

REPORT INFORMATION
  Report Type: 
  Country: None (occurrence: None)
  Receive Date: 20050629
  Receipt Date: 20040921
  Transmission Date: 20051028
  Serious: No
  Sender: FDA-Public Use
  Company Number: US-GLAXOSMITHKLINE-A0526797A

PATIENT
  Sex: Female

DRUGS (2)
  1. ZYBAN [Suspect]
     Dosage: 150MG UNKNOWN
     Route: 048
  2. WELLBUTRIN SR [Concomitant]
     Route: 048

REACTIONS (1)
  - DRUG INTOLERANCE [None]
